FAERS Safety Report 5766741-9 (Version None)
Quarter: 2008Q2

REPORT INFORMATION
  Report Type: 
  Country: None (occurrence: None)
  Receive Date: 20080609
  Receipt Date: 20080512
  Transmission Date: 20081010
  Serious: Yes (Hospitalization)
  Sender: FDA-Public Use
  Company Number: 163-C5013-07060764

PATIENT
  Age: 51 Year
  Sex: Female
  Weight: 90.1 kg

DRUGS (28)
  1. CC-5013 (LENALIDOMIDE) (5 MILLIGRAM, CAPSULES) [Suspect]
     Indication: COMPLEX REGIONAL PAIN SYNDROME
     Dosage: 10 MG, 2 IN 1 D, ORAL
     Route: 048
     Dates: start: 20051219, end: 20070726
  2. CC-5013\PLACEBO (LENALIDOMIDE) [Suspect]
     Indication: COMPLEX REGIONAL PAIN SYNDROME
     Dosage: ORAL
     Route: 048
     Dates: end: 20051201
  3. ORPHENADRINE CR (ORPHENADRINE) [Concomitant]
  4. OXYCODONE SR (OXYCODONE) [Concomitant]
  5. OXYCODONE/APAP (OXYCODONE/APAP) [Concomitant]
  6. TRAMADOL HCL [Concomitant]
  7. NEOMYCIN POLYMYXIN B SULFATE/HYDROCORTISONE (OTOSPORIN) (EAR DROP) [Concomitant]
  8. BACLOFEN [Concomitant]
  9. TROPOL XL (METOPROLOL SUCCINATE) (TABLETS) [Concomitant]
  10. COMPAZINE (PROCHLORPERAZINE HYDROCHLORIDE) [Concomitant]
  11. PHENERGAN HCL [Concomitant]
  12. COLACE (DOCUSATE SODIUM) [Concomitant]
  13. EFFEXOR XR [Concomitant]
  14. OMEPRAZOLE MAGNESIUM (OMERPRAZOLE MAGNESIUM) [Concomitant]
  15. HYZAAR (HYZAAR) (TABLETS) [Concomitant]
  16. ZANTAC [Concomitant]
  17. DETROL [Concomitant]
  18. SULFACETAMIDE SODIM (SULFACETAMIDE SODIUM) [Concomitant]
  19. HYDROXYZINE (HYDROXYZINE) (CAPSULES) [Concomitant]
  20. PRENISONE PRENISONE) [Concomitant]
  21. HYDROCHLOROTHIAZIDE [Concomitant]
  22. LOSARTAN POTASSIUM [Concomitant]
  23. MANTOUX (TUBERCULIN PPD) [Concomitant]
  24. STEROIDS (CORTICOSTEROIDS) [Concomitant]
  25. GABAPENTIN (GABAPENTIN) (CAPSULES) [Concomitant]
  26. MULTI-VITAMINS [Concomitant]
  27. TORADOL [Concomitant]
  28. PROCHLORPERAZINE (PROCHLORPERAZINE) (TABLETS) [Concomitant]

REACTIONS (31)
  - ALVEOLITIS ALLERGIC [None]
  - ASPIRATION [None]
  - BLOOD PRESSURE SYSTOLIC INCREASED [None]
  - BRONCHOALVEOLAR LAVAGE ABNORMAL [None]
  - COLLAPSE OF LUNG [None]
  - CONSTIPATION [None]
  - DECREASED APPETITE [None]
  - DYSPHAGIA [None]
  - EGOBRONCHOPHONY [None]
  - FUNGUS SPUTUM TEST POSITIVE [None]
  - GOITRE [None]
  - HAEMORRHAGE [None]
  - HEART RATE INCREASED [None]
  - HEPATIC STEATOSIS [None]
  - INFLAMMATION [None]
  - LUNG CONSOLIDATION [None]
  - LUNG NEOPLASM [None]
  - ORAL INTAKE REDUCED [None]
  - PERIPHERAL SENSORY NEUROPATHY [None]
  - PNEUMONIA [None]
  - PNEUMONIA ASPIRATION [None]
  - PULMONARY GRANULOMA [None]
  - PULMONARY INFARCTION [None]
  - RESPIRATORY FREMITUS [None]
  - RESPIRATORY TRACT INFECTION [None]
  - SARCOIDOSIS [None]
  - SINUSITIS [None]
  - SWELLING [None]
  - THYROID DISORDER [None]
  - THYROID MASS [None]
  - WEIGHT DECREASED [None]
